FAERS Safety Report 18869904 (Version 1)
Quarter: 2021Q1

REPORT INFORMATION
  Report Type: Spontaneous
  Country: US (occurrence: US)
  Receive Date: 20210209
  Receipt Date: 20210209
  Transmission Date: 20210420
  Serious: Yes (Other)
  Sender: FDA-Public Use
  Company Number: US-ELI_LILLY_AND_COMPANY-US202101013116

PATIENT
  Sex: Male

DRUGS (4)
  1. HUMALOG [Suspect]
     Active Substance: INSULIN LISPRO
     Indication: DIABETES MELLITUS
     Dosage: 10 U, PRN
     Route: 058
  2. TOUJEO [Suspect]
     Active Substance: INSULIN GLARGINE
     Indication: DIABETES MELLITUS
     Dosage: 70 MG, DAILY
     Route: 065
  3. TOUJEO [Suspect]
     Active Substance: INSULIN GLARGINE
     Dosage: 30 MG, DAILY
     Route: 065
  4. TOUJEO [Suspect]
     Active Substance: INSULIN GLARGINE
     Dosage: 70 MG, DAILY
     Route: 065

REACTIONS (7)
  - Heart rate increased [Unknown]
  - Diarrhoea [Unknown]
  - Depressed level of consciousness [Unknown]
  - Myalgia [Unknown]
  - Blood pressure increased [Unknown]
  - Blood glucose decreased [Recovered/Resolved]
  - Muscular weakness [Unknown]
